FAERS Safety Report 8473514-5 (Version None)
Quarter: 2012Q2

REPORT INFORMATION
  Report Type: 
  Country: None (occurrence: None)
  Receive Date: 20120625
  Receipt Date: 20120625
  Transmission Date: 20120825
  Serious: Yes (Other)
  Sender: FDA-Public Use
  Company Number: None

PATIENT
  Sex: Female

DRUGS (1)
  1. PROMETRIUM [Suspect]
     Indication: MENOPAUSE
     Dosage: 400MG ONCE A DAY PO
     Route: 048

REACTIONS (2)
  - TREMOR [None]
  - PALPITATIONS [None]
